FAERS Safety Report 13766106 (Version 1)
Quarter: 2017Q3

REPORT INFORMATION
  Report Type: Report from Study
  Country: US (occurrence: US)
  Receive Date: 20170719
  Receipt Date: 20170719
  Transmission Date: 20171127
  Serious: No
  Sender: FDA-Public Use
  Company Number: US-AMGEN-USASL2017105643

PATIENT
  Age: 46 Year
  Sex: Female

DRUGS (1)
  1. ENBREL [Suspect]
     Active Substance: ETANERCEPT
     Indication: ANKYLOSING SPONDYLITIS
     Dosage: 50 MG, QWK
     Route: 058
     Dates: start: 201706

REACTIONS (9)
  - Skin discolouration [Recovering/Resolving]
  - Skin disorder [Recovering/Resolving]
  - Breast tenderness [Unknown]
  - Migraine [Recovered/Resolved]
  - Skin ulcer [Not Recovered/Not Resolved]
  - Skin exfoliation [Recovering/Resolving]
  - Impaired healing [Not Recovered/Not Resolved]
  - Pruritus [Unknown]
  - Nipple pain [Unknown]

NARRATIVE: CASE EVENT DATE: 2017
